FAERS Safety Report 15882131 (Version 2)
Quarter: 2019Q1

REPORT INFORMATION
  Report Type: Spontaneous
  Country: DE (occurrence: DE)
  Receive Date: 20190128
  Receipt Date: 20190327
  Transmission Date: 20190417
  Serious: Yes (Other)
  Sender: FDA-Public Use
  Company Number: DE-AMGEN-DEUSP2019013822

PATIENT
  Age: 36 Year
  Weight: 37.5 kg

DRUGS (2)
  1. PREDNISOLONE. [Concomitant]
     Active Substance: PREDNISOLONE
     Dosage: 20 MG, QD
  2. ENBREL [Suspect]
     Active Substance: ETANERCEPT
     Indication: PRODUCT USED FOR UNKNOWN INDICATION
     Dosage: UNK
     Route: 065

REACTIONS (12)
  - Skin discolouration [Unknown]
  - Blood creatine phosphokinase increased [Unknown]
  - Myalgia [Unknown]
  - Muscle contractions involuntary [Unknown]
  - Rhinalgia [Unknown]
  - Abdominal pain [Unknown]
  - Petechiae [Unknown]
  - Haematoma [Unknown]
  - Tendon pain [Unknown]
  - Ear pain [Unknown]
  - Synovial cyst [Unknown]
  - Raynaud^s phenomenon [Unknown]

NARRATIVE: CASE EVENT DATE: 2013
